FAERS Safety Report 7733325-2 (Version None)
Quarter: 2011Q3

REPORT INFORMATION
  Report Type: 
  Country: None (occurrence: None)
  Receive Date: 20110907
  Receipt Date: 20110826
  Transmission Date: 20111222
  Serious: Yes (Other)
  Sender: FDA-Public Use
  Company Number: US-BAYER-2011-006765

PATIENT
  Sex: Female
  Weight: 63.492 kg

DRUGS (2)
  1. YASMIN [Suspect]
  2. MACROBID [Concomitant]
     Dosage: 100 MG, UNK

REACTIONS (7)
  - DEEP VEIN THROMBOSIS [None]
  - ANXIETY [None]
  - OEDEMA PERIPHERAL [None]
  - PAIN [None]
  - EMOTIONAL DISTRESS [None]
  - ARTHRALGIA [None]
  - VARICOSE VEIN [None]
